FAERS Safety Report 8592815-3 (Version None)
Quarter: 2012Q3

REPORT INFORMATION
  Report Type: 
  Country: None (occurrence: None)
  Receive Date: 20120814
  Receipt Date: 20120809
  Transmission Date: 20120928
  Serious: Yes (Hospitalization)
  Sender: FDA-Public Use
  Company Number: MX-ROCHE-1079464

PATIENT
  Age: 49 Year
  Sex: Male
  Weight: 76.5 kg

DRUGS (15)
  1. PREDNISONE TAB [Concomitant]
     Indication: RHEUMATOID ARTHRITIS
     Route: 048
     Dates: start: 20100401
  2. OMEPRAZOLE [Concomitant]
     Route: 048
     Dates: start: 20100401
  3. LYSINE CLONIXINATE [Concomitant]
     Route: 042
     Dates: start: 20120614, end: 20120620
  4. PIROXICAM [Concomitant]
     Indication: RHEUMATOID ARTHRITIS
     Route: 048
     Dates: start: 20100401
  5. PANTOPRAZOLE [Concomitant]
     Route: 042
     Dates: start: 20120615, end: 20120620
  6. KETOROLAC [Concomitant]
     Route: 042
     Dates: start: 20120614, end: 20120618
  7. FOLIC ACID [Concomitant]
     Route: 048
     Dates: start: 20100401
  8. HYDROCORTISONUM [Concomitant]
     Route: 042
     Dates: start: 20120615, end: 20120615
  9. PREDNISONE TAB [Concomitant]
     Route: 042
     Dates: start: 20120615, end: 20120620
  10. PARGEVERINE [Concomitant]
     Route: 042
     Dates: start: 20120614, end: 20120620
  11. ACTEMRA [Suspect]
     Indication: RHEUMATOID ARTHRITIS
     Dosage: DATE OF MOST RECENT DOSE OF BLINDED STUDY IS 01/NOV/2011
     Route: 058
     Dates: start: 20110907
  12. ACTEMRA [Suspect]
     Indication: RHEUMATOID ARTHRITIS
     Dosage: DATE OF MOST RECENT DOSE OF OPEN LABEL STUDY IS 04/JUN/2012
     Route: 058
     Dates: start: 20111130
  13. METHYLPREDNISOLONE [Concomitant]
     Dates: start: 20120618, end: 20120618
  14. FLUTICASONE PROPIONATE [Concomitant]
     Dates: start: 20120618, end: 20120620
  15. METHOTREXATE [Concomitant]
     Indication: RHEUMATOID ARTHRITIS
     Route: 048
     Dates: start: 20100401

REACTIONS (1)
  - GASTRITIS EROSIVE [None]
